FAERS Safety Report 23940271 (Version 1)
Quarter: 2024Q2

REPORT INFORMATION
  Report Type: Spontaneous
  Country: US (occurrence: US)
  Receive Date: 20240605
  Receipt Date: 20240605
  Transmission Date: 20240715
  Serious: No
  Sender: FDA-Public Use
  Company Number: US-002147023-NVSC2024US117321

PATIENT
  Sex: Male

DRUGS (1)
  1. PROMACTA [Suspect]
     Active Substance: ELTROMBOPAG OLAMINE
     Indication: Penile prosthesis user
     Dosage: UNK
     Route: 065

REACTIONS (1)
  - Headache [Unknown]
